FAERS Safety Report 9804165 (Version 2)
Quarter: 2014Q1

REPORT INFORMATION
  Report Type: Spontaneous
  Country: DK (occurrence: DK)
  Receive Date: 20140108
  Receipt Date: 20140108
  Transmission Date: 20141002
  Serious: Yes (Hospitalization, Other)
  Sender: FDA-Public Use
  Company Number: PHHY2013DK150737

PATIENT
  Age: 37 Year
  Sex: Female

DRUGS (1)
  1. LINDYNETTE [Suspect]
     Indication: CONTRACEPTION
     Route: 048

REACTIONS (8)
  - Restlessness [Recovered/Resolved]
  - Chest pain [Recovered/Resolved]
  - Palpitations [Recovered/Resolved]
  - Thrombosis [Recovered/Resolved]
  - Petechiae [Not Recovered/Not Resolved]
  - Local swelling [Recovered/Resolved]
  - Pain in extremity [Recovered/Resolved]
  - Haemorrhage [Unknown]
